FAERS Safety Report 9146604 (Version 2)
Quarter: 2013Q2

REPORT INFORMATION
  Report Type: Spontaneous
  Country: JP (occurrence: JP)
  Receive Date: 20130307
  Receipt Date: 20130429
  Transmission Date: 20140414
  Serious: No
  Sender: FDA-Public Use
  Company Number: JP-JNJFOC-20130300487

PATIENT
  Age: 54 Year
  Sex: Female
  Weight: 64 kg

DRUGS (10)
  1. REMICADE [Suspect]
     Indication: RHEUMATOID ARTHRITIS
     Route: 042
     Dates: start: 20130204
  2. REMICADE [Suspect]
     Indication: RHEUMATOID ARTHRITIS
     Route: 042
     Dates: start: 20110912
  3. BLOPRESS [Concomitant]
     Route: 048
     Dates: start: 20090209
  4. TAKEPRON [Concomitant]
     Dates: start: 20090309
  5. NORVASC [Concomitant]
     Route: 048
     Dates: start: 20090622
  6. CELECOX [Concomitant]
     Dosage: DOSE FOR ONE TREATMENT 100 MG
     Route: 048
     Dates: start: 20090929
  7. MUCOSTA [Concomitant]
     Dosage: DOSE FOR ONE TREATMENT 100MG
     Route: 048
     Dates: start: 20090929
  8. METHOTREXATE [Concomitant]
     Route: 048
     Dates: start: 20091221
  9. AZULFIDINE-EN [Concomitant]
     Dosage: DOSE FOR ONE TREATMENT 500 MG
     Route: 048
     Dates: start: 20100802
  10. FOLIAMIN [Concomitant]
     Route: 048
     Dates: start: 20130312

REACTIONS (1)
  - Alopecia [Recovering/Resolving]
